FAERS Safety Report 7930786 (Version 2)
Quarter: 2012Q4

REPORT INFORMATION
  Report Type: 
  Country: US (occurrence: None)
  Receive Date: 20110415
  Receipt Date: 20120907
  Transmission Date: 20130627
  Serious: Yes (Other)
  Sender: FDA-Public Use
  Company Number: AUR-APL-2011-01154

PATIENT
  Age: 3 Year
  Sex: Male

DRUGS (3)
  1. LAMOTRIGINE [Suspect]
     Indication: GENERALIZED TONIC-CLONIC SEIZURE
  2. LAMOTRIGINE [Suspect]
     Indication: ABSENCE SEIZURE
  3. CLONAZEPAM [Concomitant]

REACTIONS (4)
  - Oculogyric crisis [None]
  - Toxicity to various agents [None]
  - Somnolence [None]
  - Overdose [None]
